FAERS Safety Report 13590349 (Version 1)
Quarter: 2017Q2

REPORT INFORMATION
  Report Type: Spontaneous
  Country: AU (occurrence: AU)
  Receive Date: 20170529
  Receipt Date: 20170529
  Transmission Date: 20170830
  Serious: Yes (Hospitalization, Other)
  Sender: FDA-Public Use
  Company Number: AU-BRISTOL-MYERS SQUIBB COMPANY-BMS-2017-044895

PATIENT
  Age: 60 Year

DRUGS (2)
  1. NIVOLUMAB [Suspect]
     Active Substance: NIVOLUMAB
     Indication: MALIGNANT MELANOMA
     Dosage: 3 MG/KG, UNK
     Route: 065
  2. IPILIMUMAB [Suspect]
     Active Substance: IPILIMUMAB
     Indication: MALIGNANT MELANOMA
     Dosage: 10 MG/KG, UNK
     Route: 065

REACTIONS (14)
  - Night sweats [Unknown]
  - Alanine aminotransferase increased [Unknown]
  - Secondary adrenocortical insufficiency [Unknown]
  - Diabetes mellitus [Unknown]
  - Wound infection [Unknown]
  - Autoimmune hepatitis [Unknown]
  - Headache [Unknown]
  - Hyperthyroidism [Unknown]
  - Rash [Unknown]
  - Vomiting [Unknown]
  - Hot flush [Unknown]
  - Lymphocytic hypophysitis [Unknown]
  - Diarrhoea [Unknown]
  - Fatigue [Unknown]

NARRATIVE: CASE EVENT DATE: 201502
